FAERS Safety Report 24336415 (Version 1)
Quarter: 2024Q3

REPORT INFORMATION
  Report Type: Spontaneous
  Country: GR (occurrence: GR)
  Receive Date: 20240919
  Receipt Date: 20240919
  Transmission Date: 20241016
  Serious: No
  Sender: ROCHE
  Company Number: GR-ROCHE-3560433

PATIENT
  Age: 37 Year
  Sex: Female

DRUGS (3)
  1. TAMIFLU [Suspect]
     Active Substance: OSELTAMIVIR PHOSPHATE
     Indication: Influenza
     Dosage: 1 CAPSULE
     Route: 065
     Dates: start: 20240506
  2. CECLOR [Concomitant]
     Active Substance: CEFACLOR
  3. SYMBICORT [Concomitant]
     Active Substance: BUDESONIDE\FORMOTEROL FUMARATE DIHYDRATE

REACTIONS (7)
  - Discomfort [Unknown]
  - Tachycardia [Unknown]
  - Asthenia [Unknown]
  - Nausea [Unknown]
  - Fatigue [Unknown]
  - Tremor [Unknown]
  - Ear infection [Unknown]

NARRATIVE: CASE EVENT DATE: 20240506
